FAERS Safety Report 8384816-5 (Version None)
Quarter: 2012Q2

REPORT INFORMATION
  Report Type: 
  Country: None (occurrence: None)
  Receive Date: 20120524
  Receipt Date: 20120515
  Transmission Date: 20120825
  Serious: Yes (Hospitalization)
  Sender: FDA-Public Use
  Company Number: FR-CELGENEUS-056-50794-12021045

PATIENT
  Sex: Female
  Weight: 50 kg

DRUGS (7)
  1. VIDAZA [Suspect]
     Dosage: 114 MILLIGRAM
     Route: 058
     Dates: start: 20120102, end: 20120110
  2. VIDAZA [Suspect]
     Dosage: 114 MILLIGRAM
     Route: 058
     Dates: start: 20120202, end: 20120206
  3. VIDAZA [Suspect]
     Dosage: 114 MILLIGRAM
     Route: 058
     Dates: start: 20120207
  4. ZOFRAN [Concomitant]
     Dosage: 2 TABLET
     Route: 048
     Dates: start: 20120102
  5. REVLIMID [Suspect]
     Dosage: 10 MILLIGRAM
     Route: 048
     Dates: start: 20120202
  6. REVLIMID [Suspect]
     Dosage: 10 MILLIGRAM
     Route: 048
     Dates: start: 20120102, end: 20120115
  7. PRIMPERAN TAB [Concomitant]
     Dosage: 2 TABLET
     Route: 048
     Dates: start: 20120102

REACTIONS (3)
  - FULL BLOOD COUNT DECREASED [None]
  - GASTROENTERITIS RADIATION [None]
  - LOWER GASTROINTESTINAL HAEMORRHAGE [None]
